FAERS Safety Report 8910573 (Version 2)
Quarter: 2013Q1

REPORT INFORMATION
  Report Type: Spontaneous
  Country: US (occurrence: US)
  Receive Date: 20121114
  Receipt Date: 20130221
  Transmission Date: 20140127
  Serious: Yes (Life-Threatening, Hospitalization, Disabling, Other)
  Sender: FDA-Public Use
  Company Number: US-GLAXOSMITHKLINE-A0999967A

PATIENT
  Age: 64 Year
  Sex: Male
  Weight: 104.5 kg

DRUGS (13)
  1. VOTRIENT [Suspect]
     Indication: RENAL CELL CARCINOMA
     Route: 048
     Dates: start: 20120906, end: 20121011
  2. IBUPROFEN [Suspect]
     Indication: PRODUCT USED FOR UNKNOWN INDICATION
     Dosage: 600MG THREE TIMES PER DAY
     Route: 048
  3. ASA [Suspect]
     Indication: PRODUCT USED FOR UNKNOWN INDICATION
  4. NAPROXEN [Suspect]
     Indication: PRODUCT USED FOR UNKNOWN INDICATION
     Dosage: 2TAB IN THE MORNING
     Dates: start: 20120926
  5. DEXAMETHASONE [Concomitant]
  6. BENAZEPRIL [Concomitant]
  7. METOPROLOL [Concomitant]
  8. LIPITOR [Concomitant]
  9. PRILOSEC [Concomitant]
  10. MIRALAX [Concomitant]
  11. HYDROCODONE APAP [Concomitant]
  12. PROCHLORPERAZINE [Concomitant]
  13. SUCRALFAT [Concomitant]

REACTIONS (12)
  - Pharyngeal fistula [Recovering/Resolving]
  - Abscess jaw [Recovering/Resolving]
  - Osteonecrosis of jaw [Recovering/Resolving]
  - Endotracheal intubation [Unknown]
  - Local swelling [Recovering/Resolving]
  - Tongue haemorrhage [Recovering/Resolving]
  - Mouth haemorrhage [Recovering/Resolving]
  - Dyspnoea [Recovering/Resolving]
  - Eating disorder [Recovering/Resolving]
  - Nuchal rigidity [Recovering/Resolving]
  - Ill-defined disorder [Recovering/Resolving]
  - Drug interaction [Recovering/Resolving]
